FAERS Safety Report 5703907-8 (Version None)
Quarter: 2008Q2

REPORT INFORMATION
  Report Type: 
  Country: None (occurrence: None)
  Receive Date: 20080408
  Receipt Date: 20080325
  Transmission Date: 20081010
  Serious: Yes (Hospitalization, Other)
  Sender: FDA-Public Use
  Company Number: FEI2008-0477

PATIENT
  Age: 44 Year
  Sex: Female
  Weight: 87.9978 kg

DRUGS (1)
  1. PARAGARD T 380A [Suspect]
     Indication: CONTRACEPTION
     Dosage: INTRA-UTERINE
     Route: 015
     Dates: start: 20070425, end: 20080118

REACTIONS (10)
  - ALLERGY TO METALS [None]
  - ALOPECIA [None]
  - BLOOD COPPER INCREASED [None]
  - DIZZINESS [None]
  - FALL [None]
  - GINGIVAL PAIN [None]
  - GINGIVAL SWELLING [None]
  - LOOSE TOOTH [None]
  - ORAL INTAKE REDUCED [None]
  - WEIGHT DECREASED [None]
